FAERS Safety Report 5758966-3 (Version None)
Quarter: 2008Q2

REPORT INFORMATION
  Report Type: 
  Country: None (occurrence: None)
  Receive Date: 20080604
  Receipt Date: 20080530
  Transmission Date: 20081010
  Serious: Yes (Hospitalization)
  Sender: FDA-Public Use
  Company Number: JP-SANOFI-SYNTHELABO-A01200805718

PATIENT
  Age: 74 Year
  Sex: Male
  Weight: 62.7 kg

DRUGS (7)
  1. PLETAL [Concomitant]
     Indication: CEREBRAL INFARCTION
     Route: 050
     Dates: start: 20080412, end: 20080415
  2. CRESTOR [Concomitant]
     Indication: HYPERLIPIDAEMIA
     Route: 050
     Dates: start: 20080413, end: 20080415
  3. BISOLVON [Concomitant]
     Indication: BRONCHITIS
     Route: 050
     Dates: start: 20080318, end: 20080415
  4. DIOVAN [Concomitant]
     Indication: HYPERTENSION
     Route: 050
     Dates: start: 20080305, end: 20080415
  5. TANATRIL [Suspect]
     Indication: HYPERTENSION
     Route: 050
     Dates: start: 20080312, end: 20080415
  6. TANATRIL [Suspect]
     Indication: PROPHYLAXIS
     Route: 050
     Dates: start: 20080312, end: 20080415
  7. PLAVIX [Suspect]
     Indication: CEREBRAL INFARCTION
     Route: 050
     Dates: start: 20080307, end: 20080415

REACTIONS (2)
  - HEPATITIS [None]
  - JAUNDICE [None]
